FAERS Safety Report 8576313 (Version 2)
Quarter: 2015Q3

REPORT INFORMATION
  Report Type: Report from Study
  Country: DE (occurrence: DE)
  Receive Date: 20120523
  Receipt Date: 20150807
  Transmission Date: 20151125
  Serious: Yes (Hospitalization)
  Sender: FDA-Public Use
  Company Number: PHHO2011DE021004

PATIENT
  Age: 49 Year
  Sex: Male
  Weight: 86.7 kg

DRUGS (14)
  1. LBH589 [Suspect]
     Active Substance: PANOBINOSTAT
     Indication: PLASMA CELL MYELOMA
     Dosage: 20 MG, TIW (2 WEEKS ON/1 WEEK OFF)
     Route: 048
     Dates: start: 20110919, end: 20111219
  2. CITALOPRAM [Concomitant]
     Active Substance: CITALOPRAM HYDROBROMIDE
     Dosage: 1-0-0
     Dates: start: 20080708, end: 20120318
  3. LBH589 [Suspect]
     Active Substance: PANOBINOSTAT
     Dosage: 20 MG, TIW (2 WEEKS ON/1 WEEK OFF)
     Route: 048
     Dates: start: 20120102, end: 20120316
  4. VELCADE [Suspect]
     Active Substance: BORTEZOMIB
     Indication: PLASMA CELL MYELOMA
     Dosage: 1.3 MG/M2, DAILY AT 1,4,8,11 AND QD ON 29
     Route: 042
     Dates: start: 20110919, end: 20111208
  5. EXCIPIAL [Concomitant]
     Indication: DRY SKIN
     Dosage: UNK
     Dates: start: 20120213, end: 20120316
  6. COMPARATOR FORTECORTIN [Suspect]
     Active Substance: DEXAMETHASONE
     Indication: PLASMA CELL MYELOMA
     Dosage: 20 MG DAILY, AT 1+2, 4+5, 8+9, 11+12 AND QD ON 29
     Route: 048
     Dates: start: 20110919, end: 20111219
  7. LBH589 [Suspect]
     Active Substance: PANOBINOSTAT
     Dosage: 20 MG, TIW (2 WEEKS ON/1 WEEK OFF)
     Route: 048
     Dates: start: 20120402
  8. COMPARATOR FORTECORTIN [Suspect]
     Active Substance: DEXAMETHASONE
     Dosage: 20 MG, QD AT 1+2, 4+5, 8+9, 11+12 AND QD ON 29
     Route: 048
     Dates: start: 20120102, end: 20120316
  9. ZOMETA [Suspect]
     Active Substance: ZOLEDRONIC ACID
     Indication: OSTEOLYSIS
     Dosage: 4 MG, QW4
     Dates: end: 20120113
  10. LYRICA [Concomitant]
     Active Substance: PREGABALIN
     Indication: POLYNEUROPATHY
     Dosage: 0-0-1
     Dates: start: 20120305, end: 20120318
  11. LYRICA [Concomitant]
     Active Substance: PREGABALIN
     Dosage: UNK
     Dates: start: 20120423
  12. ACICLOVIR [Concomitant]
     Active Substance: ACYCLOVIR
     Indication: ANTIVIRAL PROPHYLAXIS
     Dosage: 1-1-1-0
     Dates: start: 20110919, end: 201203
  13. COMPARATOR FORTECORTIN [Suspect]
     Active Substance: DEXAMETHASONE
     Dosage: 20 MG
     Route: 048
     Dates: start: 20120402
  14. RAMIPRIL. [Concomitant]
     Active Substance: RAMIPRIL
     Dosage: 1-0-1
     Dates: start: 20110224, end: 201203

REACTIONS (2)
  - Osteonecrosis of jaw [Recovered/Resolved]
  - Pneumonia [Recovered/Resolved]

NARRATIVE: CASE EVENT DATE: 20111215
